FAERS Safety Report 17276572 (Version 1)
Quarter: 2020Q1

REPORT INFORMATION
  Report Type: Spontaneous
  Country: FR (occurrence: FR)
  Receive Date: 20200116
  Receipt Date: 20200116
  Transmission Date: 20200409
  Serious: Yes (Hospitalization, Other)
  Sender: FDA-Public Use
  Company Number: NVSC2020FR006692

PATIENT
  Age: 11 Year
  Sex: Male

DRUGS (8)
  1. TACROLIMUS. [Suspect]
     Active Substance: TACROLIMUS
     Indication: IMMUNOSUPPRESSION
  2. MYCOPHENOLATE MOFETIL. [Suspect]
     Active Substance: MYCOPHENOLATE MOFETIL
     Indication: RENAL TRANSPLANT
     Dosage: 1 G, QD
     Route: 065
  3. MYCOPHENOLATE MOFETIL. [Suspect]
     Active Substance: MYCOPHENOLATE MOFETIL
     Indication: IMMUNOSUPPRESSION
     Dosage: 40 MG/KG
     Route: 065
  4. PREDNISONE. [Suspect]
     Active Substance: PREDNISONE
     Indication: RENAL TRANSPLANT
     Dosage: 0.1 MG/KG, QD
     Route: 065
  5. MYCOPHENOLATE MOFETIL. [Suspect]
     Active Substance: MYCOPHENOLATE MOFETIL
     Dosage: 500 MG/M2, BID
     Route: 065
  6. PREDNISONE. [Suspect]
     Active Substance: PREDNISONE
     Indication: IMMUNOSUPPRESSION
  7. NITAZOXANIDE [Suspect]
     Active Substance: NITAZOXANIDE
     Indication: CRYPTOSPORIDIOSIS INFECTION
     Dosage: 500 MG, TID
     Route: 048
  8. TACROLIMUS. [Suspect]
     Active Substance: TACROLIMUS
     Indication: RENAL TRANSPLANT
     Dosage: 0.24 MG/KG, QD
     Route: 065

REACTIONS (14)
  - Acute kidney injury [Unknown]
  - Dehydration [Recovered/Resolved]
  - Nausea [Recovered/Resolved]
  - Asthenia [Unknown]
  - Tachycardia [Unknown]
  - Cryptosporidiosis infection [Recovered/Resolved]
  - Abdominal distension [Unknown]
  - Hyponatraemia [Unknown]
  - Vomiting [Recovered/Resolved]
  - Abdominal pain [Recovered/Resolved]
  - Diarrhoea [Recovered/Resolved]
  - Hypotension [Recovered/Resolved]
  - Metabolic acidosis [Unknown]
  - Product use in unapproved indication [Unknown]
